FAERS Safety Report 4335235-X (Version None)
Quarter: 2004Q2

REPORT INFORMATION
  Report Type: 
  Country: None (occurrence: None)
  Receive Date: 20040406
  Receipt Date: 20040104
  Transmission Date: 20050107
  Serious: Yes (Other)
  Sender: FDA-Public Use
  Company Number: 355045

PATIENT
  Age: 51 Year
  Sex: Female

DRUGS (1)
  1. FUZEON [Suspect]
     Indication: DRUG USE FOR UNKNOWN INDICATION
     Dosage: OTHER
     Route: 050
     Dates: start: 20031226

REACTIONS (3)
  - BONE PAIN [None]
  - MYALGIA [None]
  - PYREXIA [None]
